FAERS Safety Report 25618644 (Version 1)
Quarter: 2025Q3

REPORT INFORMATION
  Report Type: Spontaneous
  Country: US (occurrence: US)
  Receive Date: 20250729
  Receipt Date: 20250729
  Transmission Date: 20251021
  Serious: No
  Sender: CALLIDITAS THERAPEUTICS AB
  Company Number: US-Calliditas-2025CAL02170

PATIENT
  Age: 47 Year
  Sex: Female

DRUGS (7)
  1. TARPEYO [Suspect]
     Active Substance: BUDESONIDE
     Indication: IgA nephropathy
     Route: 048
     Dates: start: 20250507
  2. AMITRIPTYLINE [Concomitant]
     Active Substance: AMITRIPTYLINE
  3. HYDROCHLOROTHIAZIDE\TRIAMTERENE [Concomitant]
     Active Substance: HYDROCHLOROTHIAZIDE\TRIAMTERENE
  4. JARDIANCE [Concomitant]
     Active Substance: EMPAGLIFLOZIN
  5. LISINOPRIL [Concomitant]
     Active Substance: LISINOPRIL
  6. ONDANSETRON [Concomitant]
     Active Substance: ONDANSETRON
  7. VALIUM [Concomitant]
     Active Substance: DIAZEPAM

REACTIONS (5)
  - Sleep disorder [Not Recovered/Not Resolved]
  - Malaise [Unknown]
  - Renal pain [Unknown]
  - Nausea [Unknown]
  - Diarrhoea [Unknown]
